FAERS Safety Report 7253788-9 (Version None)
Quarter: 2011Q1

REPORT INFORMATION
  Report Type: 
  Country: None (occurrence: None)
  Receive Date: 20110129
  Receipt Date: 20100129
  Transmission Date: 20110831
  Serious: No
  Sender: FDA-Public Use
  Company Number: US-ABBOTT-10P-163-0623884-00

PATIENT
  Age: 55 Year
  Sex: Female
  Weight: 68.1 kg

DRUGS (2)
  1. HUMIRA [Suspect]
     Indication: PSORIASIS
     Dosage: STARTED WITH LOADING DOSE
     Route: 058
     Dates: start: 20090601
  2. PAXIL [Concomitant]
     Indication: ANXIETY

REACTIONS (5)
  - LYMPHOCYTE COUNT INCREASED [None]
  - BLOOD CHOLESTEROL INCREASED [None]
  - NEUTROPHIL COUNT DECREASED [None]
  - ALANINE AMINOTRANSFERASE INCREASED [None]
  - BLOOD ALKALINE PHOSPHATASE INCREASED [None]
